FAERS Safety Report 5681098-X (Version None)
Quarter: 2008Q1

REPORT INFORMATION
  Report Type: 
  Country: None (occurrence: None)
  Receive Date: 20080325
  Receipt Date: 20080314
  Transmission Date: 20080703
  Serious: Yes (Death, Hospitalization, Other)
  Sender: FDA-Public Use
  Company Number: GXKR2008GB02668

PATIENT
  Age: 81 Year
  Sex: Female

DRUGS (2)
  1. PREDNISOLONE [Suspect]
     Indication: IMMUNOSUPPRESSANT DRUG THERAPY
     Dosage: 60 MG, QD; 30 MG, QD
  2. AZATHIOPRINE [Suspect]
     Indication: IMMUNOSUPPRESSANT DRUG THERAPY
     Dosage: 50 MG

REACTIONS (3)
  - CONFUSIONAL STATE [None]
  - HODGKIN'S DISEASE [None]
  - PNEUMOCYSTIS JIROVECI PNEUMONIA [None]
